FAERS Safety Report 14958925 (Version 1)
Quarter: 2018Q2

REPORT INFORMATION
  Report Type: Report from Study
  Country: US (occurrence: US)
  Receive Date: 20180531
  Receipt Date: 20180531
  Transmission Date: 20180711
  Serious: Yes (Hospitalization)
  Sender: FDA-Public Use
  Company Number: US-EISAI MEDICAL RESEARCH-EC-2018-040334

PATIENT
  Age: 58 Year
  Sex: Female
  Weight: 77.56 kg

DRUGS (29)
  1. ASCORBIC ACID. [Concomitant]
     Active Substance: ASCORBIC ACID
  2. ZOFRAN [Concomitant]
     Active Substance: ONDANSETRON HYDROCHLORIDE
  3. PREDNISONE. [Concomitant]
     Active Substance: PREDNISONE
  4. IBUPROFEN. [Concomitant]
     Active Substance: IBUPROFEN
  5. LENVATINIB [Suspect]
     Active Substance: LENVATINIB
     Indication: OVARIAN CANCER RECURRENT
     Route: 048
     Dates: start: 20171214, end: 20180509
  6. TAXOL [Suspect]
     Active Substance: PACLITAXEL
     Indication: OVARIAN CANCER RECURRENT
     Route: 041
     Dates: start: 20171214, end: 20180509
  7. OXYCODONE [Concomitant]
     Active Substance: OXYCODONE
  8. MIRALAX [Concomitant]
     Active Substance: POLYETHYLENE GLYCOL 3350
  9. PEPCID [Concomitant]
     Active Substance: FAMOTIDINE
  10. DIPHENHYDRAMINE. [Concomitant]
     Active Substance: DIPHENHYDRAMINE
  11. GLIMEPIRIDE. [Concomitant]
     Active Substance: GLIMEPIRIDE
  12. NORMAL SALINE [Concomitant]
     Active Substance: SODIUM CHLORIDE
  13. DEXAMETHASONE MOUTH RINSE/DELAYED DEXAMETHASONE [Concomitant]
  14. LOSARTAN. [Concomitant]
     Active Substance: LOSARTAN
  15. METOPROLOL. [Concomitant]
     Active Substance: METOPROLOL
  16. BIOTENE NOS [Concomitant]
     Active Substance: CETYLPYRIDINIUM CHLORIDE OR SODIUM FLUORIDE OR SODIUM MONOFLUOROPHOSPHATE OR GLUCOSE OXIDASE\LACTOFERRIN\LACTOPEROXIDASE BOVINE\LYSOZYME
  17. MORPHINE SR [Concomitant]
     Active Substance: MORPHINE
  18. ASPIRIN. [Concomitant]
     Active Substance: ASPIRIN
  19. DECADRON [Concomitant]
     Active Substance: DEXAMETHASONE
  20. NEOSPORIN [Concomitant]
     Active Substance: BACITRACIN ZINC\NEOMYCIN SULFATE\POLYMYXIN B SULFATE
  21. ALOXI [Concomitant]
     Active Substance: PALONOSETRON HYDROCHLORIDE
  22. ALOE [Concomitant]
     Active Substance: ALOE
  23. COLACE [Concomitant]
     Active Substance: DOCUSATE SODIUM
  24. ACETAMINOPHEN. [Concomitant]
     Active Substance: ACETAMINOPHEN
  25. METFORMIN [Concomitant]
     Active Substance: METFORMIN HYDROCHLORIDE
  26. MULTIVITAMIN [Concomitant]
     Active Substance: VITAMINS
  27. NORVASC [Concomitant]
     Active Substance: AMLODIPINE BESYLATE
  28. SILVADENE [Concomitant]
     Active Substance: SILVER SULFADIAZINE
  29. DESTIN [Concomitant]

REACTIONS (3)
  - Acute kidney injury [Recovered/Resolved]
  - Embolism [Not Recovered/Not Resolved]
  - Hyponatraemia [Recovering/Resolving]

NARRATIVE: CASE EVENT DATE: 20180523
